FAERS Safety Report 16914885 (Version 1)
Quarter: 2019Q4

REPORT INFORMATION
  Report Type: Spontaneous
  Country: GB (occurrence: GB)
  Receive Date: 20191014
  Receipt Date: 20191014
  Transmission Date: 20200122
  Serious: Yes (Disabling, Other)
  Sender: FDA-Public Use
  Company Number: GB-PFIZER INC-2019435213

PATIENT
  Age: 74 Year
  Sex: Female
  Weight: 70 kg

DRUGS (15)
  1. AZITHROMYCIN ANHYDROUS. [Concomitant]
     Active Substance: AZITHROMYCIN ANHYDROUS
     Dosage: 3 DF, WEEKLY (MONDAY, WEDNESDAY, FRIDAY OVER WINTER MONTHS)
     Dates: start: 20190131
  2. INCRUSE ELLIPTA [Concomitant]
     Active Substance: UMECLIDINIUM BROMIDE
     Dosage: 1 DF, DAILY, IN THE MORNING
     Route: 055
     Dates: start: 20190131, end: 20190910
  3. PREDNISOLONE. [Concomitant]
     Active Substance: PREDNISOLONE
     Dosage: 6 DF, DAILY
     Dates: start: 20190806, end: 20190811
  4. SALAMOL [SALBUTAMOL SULFATE] [Concomitant]
     Dosage: 2 DF, AS NEEDED
     Route: 055
     Dates: start: 20190131
  5. GABAPENTIN. [Suspect]
     Active Substance: GABAPENTIN
     Dosage: 300 MG, DAILY
     Dates: start: 20190903, end: 20190905
  6. GABAPENTIN. [Suspect]
     Active Substance: GABAPENTIN
     Dosage: 300 MG, 2X/DAY
     Dates: start: 20190906
  7. TRELEGY ELLIPTA [Concomitant]
     Active Substance: FLUTICASONE FUROATE\UMECLIDINIUM BROMIDE\VILANTEROL TRIFENATATE
     Dosage: 1 DF, DAILY
     Route: 055
     Dates: start: 20190308
  8. ATORVASTATIN [Concomitant]
     Active Substance: ATORVASTATIN
     Dosage: 1 DF, DAILY
     Dates: start: 20190131
  9. LEVOFLOXACIN. [Concomitant]
     Active Substance: LEVOFLOXACIN
     Indication: CONDITION AGGRAVATED
  10. NITROFURANTOIN. [Concomitant]
     Active Substance: NITROFURANTOIN
     Dosage: UNK, 2X/DAY (TWICE DAILY)
     Dates: start: 20190625, end: 20190628
  11. NYSTAN [Concomitant]
     Active Substance: NYSTATIN
     Dosage: 4 ML, DAILY
     Dates: start: 20190723, end: 20190730
  12. COCODAMOL [Concomitant]
     Active Substance: ACETAMINOPHEN\CODEINE PHOSPHATE
     Dosage: TAKE ONE TO TWO FOUR TIMES PER DAY
     Dates: start: 20190916
  13. OTOMIZE [Concomitant]
     Active Substance: DEXAMETHASONE\NEOMYCIN SULFATE
     Dosage: THREE TIMES A DAY TO BOTH EARS
     Dates: start: 20190723, end: 20190730
  14. OMEPRAZOLE. [Concomitant]
     Active Substance: OMEPRAZOLE
     Dosage: 1 DF, DAILY
     Dates: start: 20190131
  15. LEVOFLOXACIN. [Concomitant]
     Active Substance: LEVOFLOXACIN
     Indication: CHEST DISCOMFORT
     Dosage: 1 DF, 1X/DAY
     Dates: start: 20190905, end: 20190906

REACTIONS (3)
  - Diarrhoea [Unknown]
  - Hallucination [Recovered/Resolved]
  - Feeling cold [Unknown]
